FAERS Safety Report 8641804 (Version 8)
Quarter: 2013Q3

REPORT INFORMATION
  Report Type: Spontaneous
  Country: DE (occurrence: None)
  Receive Date: 20120615
  Receipt Date: 20130923
  Transmission Date: 20140515
  Serious: Yes (Disabling)
  Sender: FDA-Public Use
  Company Number: US-2012-10676

PATIENT
  Age: 42 Year
  Sex: Female

DRUGS (4)
  1. OPC-41061 [Suspect]
     Indication: CONGENITAL CYSTIC KIDNEY DISEASE
     Dosage: 45/15;60 MG, DAILY DOSE, ORAL
     Route: 048
     Dates: start: 20111206, end: 20120124
  2. DIOVAN [Concomitant]
  3. CARVEDILOL (CARVEDILOL) [Concomitant]
  4. RAMIPRIL [Concomitant]

REACTIONS (3)
  - Stress urinary incontinence [None]
  - Pollakiuria [None]
  - Polydipsia [None]
